FAERS Safety Report 8033092-1 (Version None)
Quarter: 2012Q1

REPORT INFORMATION
  Report Type: 
  Country: None (occurrence: None)
  Receive Date: 20120110
  Receipt Date: 20120105
  Transmission Date: 20120608
  Serious: Yes (Hospitalization, Other)
  Sender: FDA-Public Use
  Company Number: SE-SANOFI-AVENTIS-2011SA061691

PATIENT
  Age: 78 Year
  Sex: Female
  Weight: 63 kg

DRUGS (10)
  1. METOPROLOL SUCCINATE [Concomitant]
     Dates: start: 20110917
  2. CLOPIDOGREL BISULFATE [Suspect]
     Indication: ACUTE CORONARY SYNDROME
     Route: 065
     Dates: start: 20110822, end: 20110831
  3. OMEPRAZOLE [Concomitant]
     Dates: start: 20100610
  4. METOPROLOL SUCCINATE [Concomitant]
     Dates: start: 20100610, end: 20110928
  5. BLINDED THERAPY [Suspect]
     Indication: ACUTE CORONARY SYNDROME
     Route: 065
     Dates: start: 20110822, end: 20110831
  6. RAMIPRIL [Concomitant]
     Dates: start: 20110929
  7. RAMIPRIL [Concomitant]
     Dates: start: 20100610
  8. RAMIPRIL [Concomitant]
     Dosage: 1.25 2X2
     Dates: start: 20110917, end: 20110928
  9. SIMVASTATIN [Concomitant]
     Dates: start: 20100610
  10. ASPIRIN [Concomitant]
     Dates: start: 20100610

REACTIONS (7)
  - MITRAL VALVE INCOMPETENCE [None]
  - MITRAL VALVE PROLAPSE [None]
  - CARDIAC FAILURE CONGESTIVE [None]
  - ENDOCARDITIS [None]
  - DISEASE RECURRENCE [None]
  - HYPEREOSINOPHILIC SYNDROME [None]
  - POLYMYALGIA RHEUMATICA [None]
